FAERS Safety Report 5009739-0 (Version None)
Quarter: 2006Q2

REPORT INFORMATION
  Report Type: 
  Country: None (occurrence: None)
  Receive Date: 20060523
  Receipt Date: 20060523
  Transmission Date: 20061013
  Serious: Yes (Death)
  Sender: FDA-Public Use
  Company Number: None

PATIENT
  Age: 52 Year
  Sex: Male

DRUGS (1)
  1. HEPARIN [Suspect]
     Dosage: IVD
     Route: 041

REACTIONS (11)
  - ANGINA PECTORIS [None]
  - CARDIOGENIC SHOCK [None]
  - CORONARY ARTERY SURGERY [None]
  - DIALYSIS [None]
  - HAEMATOMA [None]
  - INFECTION [None]
  - POST PROCEDURAL HAEMORRHAGE [None]
  - RENAL DISORDER [None]
  - RENAL FAILURE ACUTE [None]
  - RESPIRATORY FAILURE [None]
  - VENTRICULAR FAILURE [None]
